FAERS Safety Report 13826137 (Version 1)
Quarter: 2017Q3

REPORT INFORMATION
  Report Type: Spontaneous
  Country: GB (occurrence: GB)
  Receive Date: 20170802
  Receipt Date: 20170802
  Transmission Date: 20171127
  Serious: Yes (Hospitalization)
  Sender: FDA-Public Use
  Company Number: GB-MYLANLABS-2017M1046536

PATIENT

DRUGS (1)
  1. EPLERENONE. [Suspect]
     Active Substance: EPLERENONE
     Indication: EJECTION FRACTION
     Dosage: 25 MG, QD
     Route: 048
     Dates: end: 20170708

REACTIONS (1)
  - Chest pain [Recovering/Resolving]
